FAERS Safety Report 9883940 (Version 1)
Quarter: 2014Q1

REPORT INFORMATION
  Report Type: Spontaneous
  Country: US (occurrence: US)
  Receive Date: 20140210
  Receipt Date: 20140210
  Transmission Date: 20141002
  Serious: No
  Sender: FDA-Public Use
  Company Number: US-ALLERGAN-1317055US

PATIENT
  Age: 45 Year
  Sex: Female

DRUGS (5)
  1. BOTOX COSMETIC [Suspect]
     Indication: SKIN WRINKLING
     Dosage: 40 UNITS, SINGLE
     Route: 030
     Dates: start: 20130826, end: 20130826
  2. BOTOX COSMETIC [Suspect]
     Indication: SKIN WRINKLING
  3. BOTOX COSMETIC [Suspect]
     Indication: SKIN WRINKLING
  4. TOPAMAX [Concomitant]
     Indication: MIGRAINE
     Dosage: 100 MG, QD
     Route: 048
  5. JUVEDERM [Concomitant]
     Indication: SKIN WRINKLING
     Dosage: UNK
     Route: 030

REACTIONS (1)
  - Therapeutic response decreased [Unknown]
